FAERS Safety Report 11222540 (Version 2)
Quarter: 2015Q4

REPORT INFORMATION
  Report Type: Report from Study
  Country: DE (occurrence: DE)
  Receive Date: 20150626
  Receipt Date: 20151028
  Transmission Date: 20160304
  Serious: Yes (Hospitalization)
  Sender: FDA-Public Use
  Company Number: DE-GILEAD-2015-0159758

PATIENT
  Age: 69 Year
  Sex: Female
  Weight: 88 kg

DRUGS (10)
  1. LEDIPASVIR/SOFOSBUVIR [Suspect]
     Active Substance: LEDIPASVIR\SOFOSBUVIR
     Indication: CHRONIC HEPATITIS C
     Dosage: 1 DF, QD
     Route: 048
     Dates: start: 20141222, end: 20150608
  2. PANTOPRAZOLE SODIUM. [Concomitant]
     Active Substance: PANTOPRAZOLE SODIUM
     Dosage: UNK
  3. OLANZAPIN [Concomitant]
     Active Substance: OLANZAPINE
     Dosage: 2.5 MG, UNK
  4. TRAZODONE [Concomitant]
     Active Substance: TRAZODONE HYDROCHLORIDE
     Dosage: 25 MG, UNK
  5. METOPROLOL [Concomitant]
     Active Substance: METOPROLOL
     Dosage: 50 MG, UNK
  6. RIFAXIMIN [Concomitant]
     Active Substance: RIFAXIMIN
  7. IBUFLAM                            /00109201/ [Concomitant]
  8. TRAMAL [Concomitant]
     Active Substance: TRAMADOL
     Dosage: 100 MG, UNK
     Dates: start: 20150427
  9. LACTULOSE. [Concomitant]
     Active Substance: LACTULOSE
  10. NOVAMIN                            /00013301/ [Concomitant]
     Active Substance: PROCHLORPERAZINE MALEATE
     Dosage: UNK
     Dates: start: 20150427

REACTIONS (3)
  - Intervertebral disc protrusion [Recovering/Resolving]
  - General physical health deterioration [Unknown]
  - Back pain [Recovering/Resolving]
